FAERS Safety Report 17505199 (Version 6)
Quarter: 2020Q3

REPORT INFORMATION
  Report Type: Report from Study
  Country: None (occurrence: US)
  Receive Date: 20200306
  Receipt Date: 20200730
  Transmission Date: 20201102
  Serious: Yes (Hospitalization, Other)
  Sender: FDA-Public Use
  Company Number: US-ABBVIE-20K-163-3305871-00

PATIENT
  Age: 85 Year
  Sex: Male

DRUGS (3)
  1. HUMIRA [Suspect]
     Active Substance: ADALIMUMAB
     Route: 058
  2. HUMIRA [Suspect]
     Active Substance: ADALIMUMAB
     Indication: RHEUMATOID ARTHRITIS
     Route: 058
  3. HUMIRA [Suspect]
     Active Substance: ADALIMUMAB
     Route: 058

REACTIONS (18)
  - Speech disorder [Not Recovered/Not Resolved]
  - Arthralgia [Unknown]
  - Gastric ulcer [Unknown]
  - Generalised oedema [Unknown]
  - Cholelithiasis [Unknown]
  - Pain in extremity [Unknown]
  - Weight decreased [Unknown]
  - Hernia [Unknown]
  - Abdominal distension [Unknown]
  - Flatulence [Unknown]
  - Pain [Unknown]
  - Haemorrhoids [Unknown]
  - Constipation [Unknown]
  - Insomnia [Unknown]
  - Hypertension [Unknown]
  - Hypophagia [Unknown]
  - Procedural pain [Not Recovered/Not Resolved]
  - Dysuria [Unknown]

NARRATIVE: CASE EVENT DATE: 202002
